FAERS Safety Report 4971961-7 (Version None)
Quarter: 2006Q2

REPORT INFORMATION
  Report Type: 
  Country: None (occurrence: None)
  Receive Date: 20060407
  Receipt Date: 20060328
  Transmission Date: 20061013
  Serious: Yes (Hospitalization, Other)
  Sender: FDA-Public Use
  Company Number: 2006043480

PATIENT
  Sex: Female
  Weight: 92.9874 kg

DRUGS (9)
  1. NEURONTIN [Suspect]
     Indication: PAIN
     Dosage: 1200 MG (300 MG, 2 IN 2 D), ORAL
     Route: 048
  2. GABAPENTIN [Suspect]
     Indication: ILL-DEFINED DISORDER
     Dosage: 1200 MG (300 MG, 2 IN 2 D), ORAL
     Route: 048
  3. ALPRAZOLAM [Concomitant]
  4. NORVASC [Concomitant]
  5. WELLBUTRIN [Concomitant]
  6. ARTHROTEC [Concomitant]
  7. DEPAKOTE [Concomitant]
  8. TRAZODONE HCL [Suspect]
     Indication: ILL-DEFINED DISORDER
  9. ULTRAM [Suspect]
     Indication: ILL-DEFINED DISORDER

REACTIONS (9)
  - BODY HEIGHT DECREASED [None]
  - FIBROMYALGIA [None]
  - INJURY [None]
  - INTENTIONAL OVERDOSE [None]
  - MALAISE [None]
  - MENTAL DISORDER [None]
  - SUICIDAL IDEATION [None]
  - SUICIDE ATTEMPT [None]
  - VISUAL ACUITY REDUCED [None]
